FAERS Safety Report 9036324 (Version 1)
Quarter: 2013Q1

REPORT INFORMATION
  Report Type: Spontaneous
  Country: RS (occurrence: None)
  Receive Date: 20130114
  Receipt Date: 20130114
  Transmission Date: 20140127
  Serious: Yes (Other)
  Sender: FDA-Public Use
  Company Number: 2013P1000235

PATIENT
  Age: 10 Year
  Sex: Male

DRUGS (2)
  1. FENTANYL [Suspect]
  2. METHYLPREDNISOLONE [Suspect]

REACTIONS (2)
  - Drug hypersensitivity [None]
  - Anaphylactic reaction [None]
